FAERS Safety Report 21227956 (Version 1)
Quarter: 2022Q3

REPORT INFORMATION
  Report Type: Spontaneous
  Country: NP (occurrence: NP)
  Receive Date: 20220818
  Receipt Date: 20220818
  Transmission Date: 20221027
  Serious: Yes (Hospitalization, Other)
  Sender: FDA-Public Use
  Company Number: NP-AMNEAL PHARMACEUTICALS-2022-AMRX-02318

PATIENT
  Age: 25 Year
  Sex: Male

DRUGS (2)
  1. AMLODIPINE BESYLATE [Suspect]
     Active Substance: AMLODIPINE BESYLATE
     Indication: Product used for unknown indication
     Route: 065
  2. CLONAZEPAM [Suspect]
     Active Substance: CLONAZEPAM
     Indication: Product used for unknown indication
     Route: 065

REACTIONS (9)
  - Suicide attempt [Unknown]
  - Overdose [Unknown]
  - Toxicity to various agents [Unknown]
  - Loss of consciousness [Unknown]
  - Hypokalaemia [Unknown]
  - Pyrexia [Recovered/Resolved]
  - Hypotension [Unknown]
  - Depression [Unknown]
  - Anxiety [Unknown]
